FAERS Safety Report 11824510 (Version 1)
Quarter: 2015Q4

REPORT INFORMATION
  Report Type: Other
  Country: FR (occurrence: FR)
  Receive Date: 20151210
  Receipt Date: 20151210
  Transmission Date: 20160305
  Serious: Yes (Hospitalization, Other)
  Sender: FDA-Public Use
  Company Number: FR-MYLANLABS-2015M1043799

PATIENT

DRUGS (1)
  1. CLOZAPINE MYLAN 100 MG [Suspect]
     Active Substance: CLOZAPINE
     Indication: PRODUCT USED FOR UNKNOWN INDICATION
     Dosage: 100 MG, TOTAL
     Route: 048
     Dates: start: 20150823, end: 20150823

REACTIONS (3)
  - Somnolence [Recovered/Resolved]
  - Drug dispensing error [Unknown]
  - Product name confusion [Unknown]

NARRATIVE: CASE EVENT DATE: 20150823
